FAERS Safety Report 11580031 (Version 1)
Quarter: 2015Q3

REPORT INFORMATION
  Report Type: Spontaneous
  Country: US (occurrence: US)
  Receive Date: 20150916
  Receipt Date: 20150916
  Transmission Date: 20151125
  Serious: No
  Sender: FDA-Public Use
  Company Number: US-ELI_LILLY_AND_COMPANY-US200805001495

PATIENT
  Age: 79 Year
  Sex: Male

DRUGS (2)
  1. IRON [Concomitant]
     Active Substance: IRON
  2. FORTEO [Suspect]
     Active Substance: TERIPARATIDE
     Indication: FRACTURE
     Dates: start: 200711

REACTIONS (2)
  - Lethargy [Not Recovered/Not Resolved]
  - Hypersomnia [Unknown]

NARRATIVE: CASE EVENT DATE: 200711
